FAERS Safety Report 18350033 (Version 2)
Quarter: 2020Q4

REPORT INFORMATION
  Report Type: Spontaneous
  Country: NL (occurrence: NL)
  Receive Date: 20201006
  Receipt Date: 20201014
  Transmission Date: 20210114
  Serious: Yes (Other)
  Sender: FDA-Public Use
  Company Number: NL-PFIZER INC-2020382739

PATIENT
  Age: 46 Year
  Sex: Male

DRUGS (3)
  1. DOBUTAMINE HCL [Suspect]
     Active Substance: DOBUTAMINE HYDROCHLORIDE
     Dosage: 40 UG/KG/MIN
     Route: 065
  2. ACETYLCHOLINE [Concomitant]
     Active Substance: ACETYLCHOLINE CHLORIDE
     Dosage: UP TO 1 MMOL/L INTRACORONARY INFUSION
  3. DOBUTAMINE HCL [Suspect]
     Active Substance: DOBUTAMINE HYDROCHLORIDE
     Indication: STRESS ECHOCARDIOGRAM
     Dosage: INCREASING DOSES OF DOBUTAMINE (UP TO 40 UG/KG/MIN)
     Route: 065

REACTIONS (4)
  - Off label use [Recovered/Resolved]
  - Product use in unapproved indication [Recovered/Resolved]
  - Coronary artery compression [Recovered/Resolved]
  - Ventricular extrasystoles [Recovered/Resolved]
